FAERS Safety Report 6268073-1 (Version None)
Quarter: 2009Q3

REPORT INFORMATION
  Report Type: 
  Country: None (occurrence: None)
  Receive Date: 20090713
  Receipt Date: 20090629
  Transmission Date: 20100115
  Serious: Yes (Death, Hospitalization)
  Sender: FDA-Public Use
  Company Number: 200906AGG00881

PATIENT
  Age: 44 Year
  Sex: Male

DRUGS (3)
  1. TIROFIBAN (TIROFIBAN HCL) [Suspect]
     Dosage: INTRAVENOUS DRIP
     Route: 041
     Dates: start: 20090425, end: 20090425
  2. ALTEPLASE (ALTEPLASE) [Suspect]
     Dosage: INTRAVENOUS DRIP
     Route: 041
     Dates: start: 20090425, end: 20090425
  3. HEPARIN [Suspect]
     Dosage: INTRAVENOUS DRIP
     Route: 041

REACTIONS (6)
  - CEREBRAL HAEMORRHAGE [None]
  - DEPRESSED LEVEL OF CONSCIOUSNESS [None]
  - GENERAL PHYSICAL HEALTH DETERIORATION [None]
  - ISCHAEMIA [None]
  - PUPILLARY DISORDER [None]
  - VOMITING [None]
